FAERS Safety Report 5423871-9 (Version None)
Quarter: 2007Q3

REPORT INFORMATION
  Report Type: 
  Country: None (occurrence: None)
  Receive Date: 20070823
  Receipt Date: 20070815
  Transmission Date: 20080115
  Serious: Yes (Other)
  Sender: FDA-Public Use
  Company Number: JP-ROCHE-498228

PATIENT
  Age: 66 Year
  Sex: Male
  Weight: 61 kg

DRUGS (9)
  1. PEGASYS [Suspect]
     Route: 058
     Dates: start: 20051026, end: 20060123
  2. PEGASYS [Suspect]
     Route: 058
     Dates: start: 20060303, end: 20060413
  3. PEGASYS [Suspect]
     Route: 058
     Dates: start: 20060421, end: 20060929
  4. PEGASYS [Suspect]
     Dosage: ONCE 3-5 WEEKS
     Route: 058
     Dates: start: 20061102, end: 20070302
  5. URSO 250 [Concomitant]
     Route: 048
     Dates: start: 20051026, end: 20060512
  6. NEUQUINON [Concomitant]
     Route: 048
     Dates: start: 20051026, end: 20060512
  7. GASTROM [Concomitant]
     Route: 048
     Dates: start: 20051026, end: 20060512
  8. 1 CONCOMITANT DRUG [Concomitant]
     Dosage: REOPRTED AS OTSUJI-TO.
     Route: 048
     Dates: start: 20060425, end: 20060614
  9. LENDORMIN [Concomitant]
     Route: 048
     Dates: start: 20061109, end: 20070414

REACTIONS (3)
  - HYPERTENSION [None]
  - PLATELET COUNT DECREASED [None]
  - SUBDURAL HAEMATOMA [None]
